FAERS Safety Report 15413869 (Version 1)
Quarter: 2018Q3

REPORT INFORMATION
  Report Type: Report from Study
  Country: MX (occurrence: MX)
  Receive Date: 20180921
  Receipt Date: 20180921
  Transmission Date: 20181010
  Serious: Yes (Hospitalization)
  Sender: FDA-Public Use
  Company Number: MX-SAKK-2018SA236483AA

PATIENT
  Age: 69 Year
  Sex: Female
  Weight: 78 kg

DRUGS (2)
  1. INSULIN GLARGINE [Suspect]
     Active Substance: INSULIN GLARGINE
     Dosage: 35 IU, BID
     Route: 058
     Dates: start: 20180820
  2. INSULIN GLARGINE [Suspect]
     Active Substance: INSULIN GLARGINE
     Indication: TYPE 2 DIABETES MELLITUS
     Dosage: 26,20,IU, BID
     Route: 058
     Dates: start: 2017, end: 20180820

REACTIONS (6)
  - Dizziness [Recovered/Resolved]
  - Hyperglycaemia [Recovered/Resolved]
  - Asthenia [Recovered/Resolved]
  - Off label use [Unknown]
  - Headache [Recovered/Resolved]
  - Anaemia [Recovered/Resolved]

NARRATIVE: CASE EVENT DATE: 2017
